FAERS Safety Report 7308640-7 (Version None)
Quarter: 2011Q1

REPORT INFORMATION
  Report Type: 
  Country: None (occurrence: None)
  Receive Date: 20110223
  Receipt Date: 20110218
  Transmission Date: 20110831
  Serious: Yes (Hospitalization, Disabling, Other)
  Sender: FDA-Public Use
  Company Number: US-MERCK-1003USA04015

PATIENT
  Age: 72 Year
  Sex: Female
  Weight: 78 kg

DRUGS (3)
  1. FOSAMAX [Suspect]
     Route: 048
     Dates: start: 20050101, end: 20070701
  2. FOSAMAX [Suspect]
     Indication: OSTEOPOROSIS
     Route: 048
     Dates: start: 20010601, end: 20040701
  3. PREPRO [Concomitant]
     Route: 065

REACTIONS (50)
  - BONE LESION [None]
  - FALL [None]
  - LOW TURNOVER OSTEOPATHY [None]
  - SOMNOLENCE [None]
  - OBESITY [None]
  - WHEEZING [None]
  - URINARY TRACT DISORDER [None]
  - SYNOVIAL CYST [None]
  - POLLAKIURIA [None]
  - INSOMNIA [None]
  - CYSTITIS INTERSTITIAL [None]
  - ARTERIOSCLEROSIS [None]
  - FEMUR FRACTURE [None]
  - METASTASIS [None]
  - ARTERIAL STENOSIS [None]
  - PAIN IN EXTREMITY [None]
  - HYPERLIPIDAEMIA [None]
  - UPPER-AIRWAY COUGH SYNDROME [None]
  - MUSCLE SPASMS [None]
  - URINARY RETENTION [None]
  - GLUCOSE TOLERANCE IMPAIRED [None]
  - CYSTITIS [None]
  - BONE DISORDER [None]
  - STRESS FRACTURE [None]
  - ARTHRITIS [None]
  - TYPE 2 DIABETES MELLITUS [None]
  - ASTHENIA [None]
  - MYOCARDIAL ISCHAEMIA [None]
  - FATIGUE [None]
  - DYSPEPSIA [None]
  - DIZZINESS [None]
  - INTERVERTEBRAL DISC DEGENERATION [None]
  - BUNDLE BRANCH BLOCK RIGHT [None]
  - HAEMORRHOIDS [None]
  - BLOOD CHOLESTEROL INCREASED [None]
  - FRACTURE DELAYED UNION [None]
  - DERMATITIS ALLERGIC [None]
  - BONE DENSITY DECREASED [None]
  - RESTLESS LEGS SYNDROME [None]
  - GLUCOSE URINE PRESENT [None]
  - TOOTH FRACTURE [None]
  - DRY MOUTH [None]
  - DRUG HYPERSENSITIVITY [None]
  - OSTEOARTHRITIS [None]
  - FRACTURE NONUNION [None]
  - OSTEOPENIA [None]
  - HYPERTENSION [None]
  - BURSITIS [None]
  - BACK PAIN [None]
  - BLADDER IRRITATION [None]
